FAERS Safety Report 15243547 (Version 2)
Quarter: 2020Q1

REPORT INFORMATION
  Report Type: Spontaneous
  Country: US (occurrence: US)
  Receive Date: 20180806
  Receipt Date: 20200224
  Transmission Date: 20200409
  Serious: No
  Sender: FDA-Public Use
  Company Number: US-PFIZER INC-2018313027

PATIENT
  Sex: Female

DRUGS (4)
  1. TEGRETOL [Suspect]
     Active Substance: CARBAMAZEPINE
     Dosage: UNK
  2. VICODIN [Suspect]
     Active Substance: ACETAMINOPHEN\HYDROCODONE BITARTRATE
     Dosage: UNK
  3. DEMEROL [Suspect]
     Active Substance: MEPERIDINE HYDROCHLORIDE
     Dosage: UNK
  4. BARIUM SULFATE [Suspect]
     Active Substance: BARIUM SULFATE
     Dosage: UNK

REACTIONS (1)
  - Drug hypersensitivity [Unknown]
